FAERS Safety Report 8011043-3 (Version None)
Quarter: 2011Q4

REPORT INFORMATION
  Report Type: 
  Country: None (occurrence: None)
  Receive Date: 20111228
  Receipt Date: 20111216
  Transmission Date: 20120403
  Serious: Yes (Hospitalization)
  Sender: FDA-Public Use
  Company Number: SE-ELI_LILLY_AND_COMPANY-SE201110003623

PATIENT
  Sex: Male

DRUGS (5)
  1. OLANZAPINE [Suspect]
     Indication: SCHIZOPHRENIA
     Dosage: 300 MG, UNKNOWN
     Route: 030
     Dates: start: 20111012
  2. ZOPIKLON [Concomitant]
  3. FLUOXETINE HCL [Concomitant]
  4. PROPAVAN [Concomitant]
  5. SEROQUEL [Concomitant]

REACTIONS (1)
  - INJECTION SITE ABSCESS [None]
